FAERS Safety Report 6688201-3 (Version None)
Quarter: 2010Q2

REPORT INFORMATION
  Report Type: 
  Country: None (occurrence: None)
  Receive Date: 20100420
  Receipt Date: 20100408
  Transmission Date: 20101027
  Serious: Yes (Other)
  Sender: FDA-Public Use
  Company Number: US-PFIZER INC-2010045399

PATIENT
  Sex: Male

DRUGS (1)
  1. ZOLOFT [Suspect]
     Dosage: UNK
     Dates: start: 19960101

REACTIONS (6)
  - DIARRHOEA [None]
  - ERECTILE DYSFUNCTION [None]
  - HEADACHE [None]
  - HYPERTENSION [None]
  - PROSTATE CANCER [None]
  - RENAL TRANSPLANT [None]
